FAERS Safety Report 20697333 (Version 1)
Quarter: 2022Q2

REPORT INFORMATION
  Report Type: Spontaneous
  Country: US (occurrence: US)
  Receive Date: 20220411
  Receipt Date: 20220411
  Transmission Date: 20220721
  Serious: No
  Sender: FDA-Public Use
  Company Number: US-PFIZER INC-202100951134

PATIENT
  Age: 60 Year
  Sex: Female
  Weight: 89.36 kg

DRUGS (1)
  1. CHANTIX [Suspect]
     Active Substance: VARENICLINE TARTRATE
     Indication: Smoking cessation therapy
     Dosage: 1 MG, 2X/DAY (1MG ONE TABLET IN THE MORNING AND ONE IN THE EVENING.)

REACTIONS (2)
  - Drug ineffective [Unknown]
  - Recalled product administered [Unknown]
